FAERS Safety Report 13615714 (Version 5)
Quarter: 2017Q3

REPORT INFORMATION
  Report Type: Spontaneous
  Country: US (occurrence: JP)
  Receive Date: 20170606
  Receipt Date: 20170721
  Transmission Date: 20171127
  Serious: Yes (Other)
  Sender: FDA-Public Use
  Company Number: US-PFIZER INC-2017241912

PATIENT
  Age: 34 Year
  Sex: Female
  Weight: 113.4 kg

DRUGS (13)
  1. SYNTHROID [Concomitant]
     Active Substance: LEVOTHYROXINE SODIUM
     Indication: AUTOIMMUNE THYROIDITIS
     Dosage: 150 UG, 1X/DAY(150 MCG TABLET BY MOUTH ONCE A DAY)
     Route: 048
     Dates: start: 201201
  2. INDERAL [Concomitant]
     Active Substance: PROPRANOLOL HYDROCHLORIDE
     Indication: HYPERTENSION
     Dosage: UNK
  3. LYRICA [Suspect]
     Active Substance: PREGABALIN
     Dosage: UNK
     Dates: end: 201608
  4. FLEXERIL [Concomitant]
     Active Substance: CYCLOBENZAPRINE HYDROCHLORIDE
     Indication: FIBROMYALGIA
     Dosage: 10 MG, 3X/DAY(10 MG TABLET BY MOUTH THREE TIMES A DAY)
     Route: 048
     Dates: start: 201610
  5. PREGABALIN. [Suspect]
     Active Substance: PREGABALIN
     Indication: FIBROMYALGIA
  6. LYRICA [Suspect]
     Active Substance: PREGABALIN
     Indication: FIBROMYALGIA
     Dosage: UNK
     Dates: end: 201501
  7. EFFEXOR XR [Concomitant]
     Active Substance: VENLAFAXINE HYDROCHLORIDE
     Indication: ANXIETY
  8. LYRICA [Suspect]
     Active Substance: PREGABALIN
     Indication: SCIATICA
     Dosage: 450 MG, DAILY (150 MG IN THE MORNING AND THEN 300MG IN THE EVENING)
     Route: 048
     Dates: start: 2012
  9. LYRICA [Suspect]
     Active Substance: PREGABALIN
     Dosage: UNK
     Dates: end: 201705
  10. EFFEXOR [Concomitant]
     Active Substance: VENLAFAXINE HYDROCHLORIDE
     Indication: DEPRESSION
     Dosage: UNK
  11. PREGABALIN. [Suspect]
     Active Substance: PREGABALIN
     Indication: SCIATICA
     Dosage: 450 MG, DAILY
     Route: 048
  12. EFFEXOR XR [Concomitant]
     Active Substance: VENLAFAXINE HYDROCHLORIDE
     Indication: DEPRESSION
     Dosage: 150 MG, 1X/DAY(150 MG CAPSULE BY MOUTH ONCE IN THE MORNING)
     Route: 048
     Dates: start: 201610
  13. HYDROCHLOROTHIAZIDE. [Concomitant]
     Active Substance: HYDROCHLOROTHIAZIDE
     Indication: HYPERTENSION
     Dosage: 50 MG, 1X/DAY(50 MG TABLET BY MOUTH ONCE A DAY IN THE EVENING)
     Route: 048
     Dates: start: 20170420

REACTIONS (16)
  - Heart rate decreased [Unknown]
  - Vomiting [Recovered/Resolved]
  - Hypersomnia [Unknown]
  - Withdrawal syndrome [Recovered/Resolved]
  - Intentional product use issue [Unknown]
  - Abdominal discomfort [Not Recovered/Not Resolved]
  - Diarrhoea [Recovered/Resolved]
  - Drug effect incomplete [Unknown]
  - Malaise [Recovered/Resolved]
  - Hypersomnia [Not Recovered/Not Resolved]
  - Drug dose omission [Recovered/Resolved]
  - Apparent death [Unknown]
  - Hot flush [Recovered/Resolved]
  - Hypotension [Unknown]
  - Nausea [Recovered/Resolved]
  - Decreased appetite [Recovered/Resolved]

NARRATIVE: CASE EVENT DATE: 20170526
